FAERS Safety Report 21450826 (Version 1)
Quarter: 2022Q4

REPORT INFORMATION
  Report Type: Spontaneous
  Country: GB (occurrence: GB)
  Receive Date: 20221013
  Receipt Date: 20221013
  Transmission Date: 20230113
  Serious: Yes (Disabling)
  Sender: FDA-Public Use
  Company Number: None

PATIENT
  Age: 89 Year
  Sex: Female
  Weight: 68 kg

DRUGS (15)
  1. FUROSEMIDE [Suspect]
     Active Substance: FUROSEMIDE
     Indication: Product used for unknown indication
     Dosage: EACH MORNING
     Dates: start: 20220906
  2. ASPIRIN [Concomitant]
     Active Substance: ASPIRIN
     Dates: start: 20220428
  3. ATORVASTATIN [Concomitant]
     Active Substance: ATORVASTATIN
     Dosage: AT NIGHT
     Dates: start: 20220428
  4. CLOPIDOGREL [Concomitant]
     Active Substance: CLOPIDOGREL BISULFATE
     Dosage: FOR 12 MONTHS UNTIL 31-DEC-2022
     Dates: start: 20220428
  5. COCODAMOL [Concomitant]
     Active Substance: ACETAMINOPHEN\CODEINE PHOSPHATE
     Dosage: 1-2 NOCTE, AS NECESSARY
     Dates: start: 20220428
  6. ENALAPRIL [Concomitant]
     Active Substance: ENALAPRIL
     Dosage: TAKE ONE TWICE A DAY
     Dates: start: 20220428
  7. GLICLAZIDE [Concomitant]
     Active Substance: GLICLAZIDE
     Dosage: TAKE ONE DAILY
     Dates: start: 20220621
  8. NITROGLYCERIN [Concomitant]
     Active Substance: NITROGLYCERIN
     Dosage: ONE OR TWO PUFFS, AS NECESSARY
     Dates: start: 20220428
  9. LANSOPRAZOLE [Concomitant]
     Active Substance: LANSOPRAZOLE
     Dosage: TAKE ONE ONCE DAILY
     Dates: start: 20220428
  10. LERCANIDIPINE HYDROCHLORIDE [Concomitant]
     Active Substance: LERCANIDIPINE HYDROCHLORIDE
     Dosage: IN THE EVENING
     Dates: start: 20220131
  11. LEVOTHYROXINE [Concomitant]
     Active Substance: LEVOTHYROXINE
     Dosage: EACH MORNING
     Dates: start: 20220428
  12. LINAGLIPTIN [Concomitant]
     Active Substance: LINAGLIPTIN
     Dates: start: 20220428
  13. PRAMIPEXOLE [Concomitant]
     Active Substance: PRAMIPEXOLE
     Dosage: EACH NIGHT
     Dates: start: 20220428
  14. QUININE [Concomitant]
     Active Substance: QUININE
     Dates: start: 20220428
  15. SPIRONOLACTONE [Concomitant]
     Active Substance: SPIRONOLACTONE
     Dates: start: 20220914

REACTIONS (2)
  - Dizziness [Recovered/Resolved]
  - Feeling abnormal [Unknown]

NARRATIVE: CASE EVENT DATE: 20220914
